FAERS Safety Report 8055254-X (Version None)
Quarter: 2011Q4

REPORT INFORMATION
  Report Type: 
  Country: None (occurrence: None)
  Receive Date: 20111219
  Receipt Date: 20110113
  Transmission Date: 20120403
  Serious: Yes (Hospitalization, Other)
  Sender: FDA-Public Use
  Company Number: WAES 1101USA01491

PATIENT
  Age: 64 Year
  Sex: Male
  Weight: 83.9154 kg

DRUGS (13)
  1. ACTONEL MET [Concomitant]
  2. PRECOSE [Concomitant]
  3. METFORMIN HYDROCHLORIDE [Concomitant]
  4. VITAMIN D (UNSPECIFIED) [Concomitant]
  5. AMARYL [Concomitant]
  6. VYTORIN [Concomitant]
  7. LOTREL [Concomitant]
  8. LISINOPRIL [Concomitant]
  9. TRAMADOL HCL [Concomitant]
  10. JANUVIA [Suspect]
     Indication: TYPE 2 DIABETES MELLITUS
     Dosage: 100 MG/DAILY/PO
     Route: 048
     Dates: start: 20101201, end: 20110112
  11. ASPIRIN [Concomitant]
  12. TAMSULOSIN HYDROCHLORIDE [Concomitant]
  13. TOPROL-XL [Concomitant]

REACTIONS (3)
  - RENAL CYST [None]
  - PANCREATITIS [None]
  - ABDOMINAL PAIN UPPER [None]
